FAERS Safety Report 9255554 (Version 4)
Quarter: 2014Q3

REPORT INFORMATION
  Report Type: Spontaneous
  Country: US (occurrence: US)
  Receive Date: 20130425
  Receipt Date: 20140818
  Transmission Date: 20150326
  Serious: Yes (Hospitalization, Other)
  Sender: FDA-Public Use
  Company Number: US-009507513-1304USA013899

PATIENT
  Sex: Female
  Weight: 52.15 kg

DRUGS (3)
  1. NUVARING [Suspect]
     Active Substance: ETHINYL ESTRADIOL\ETONOGESTREL
     Indication: MENSTRUATION IRREGULAR
  2. NUVARING [Suspect]
     Active Substance: ETHINYL ESTRADIOL\ETONOGESTREL
     Indication: CONTRACEPTION
     Dosage: UNK; IN 3 WEEKS, OUT 1 WEEK
     Route: 067
     Dates: start: 20100512, end: 20100828
  3. VITAMINS (UNSPECIFIED) [Concomitant]
     Active Substance: VITAMINS
     Indication: NUTRITIONAL SUPPLEMENTATION
     Dosage: 1 DF, QD

REACTIONS (27)
  - Pulmonary embolism [Recovered/Resolved]
  - Epistaxis [Recovered/Resolved]
  - Hand fracture [Unknown]
  - Nasal septal operation [Unknown]
  - Depression [Unknown]
  - Food allergy [Recovered/Resolved]
  - Liver function test abnormal [Recovered/Resolved]
  - Pain in extremity [Recovering/Resolving]
  - Open reduction of fracture [Unknown]
  - Gastrointestinal haemorrhage [Recovering/Resolving]
  - Gastritis erosive [Unknown]
  - Anxiety [Unknown]
  - Toxicity to various agents [Recovered/Resolved]
  - Haematuria [Unknown]
  - Hypersensitivity [Recovered/Resolved]
  - Hypokalaemia [Unknown]
  - Haematemesis [Unknown]
  - Gastritis [Unknown]
  - Cholecystectomy [Unknown]
  - Off label use [Recovered/Resolved]
  - Abdominal pain upper [Recovering/Resolving]
  - Hypomagnesaemia [Unknown]
  - Chest pain [Unknown]
  - Antiphospholipid syndrome [Unknown]
  - Mammoplasty [Unknown]
  - Gallbladder disorder [Unknown]
  - Chest pain [Unknown]

NARRATIVE: CASE EVENT DATE: 20100512
